FAERS Safety Report 8929172 (Version 1)
Quarter: 2012Q4

REPORT INFORMATION
  Report Type: 
  Country: FR (occurrence: FR)
  Receive Date: 20121127
  Receipt Date: 20121127
  Transmission Date: 20130627
  Serious: Yes (Death, Hospitalization)
  Sender: FDA-Public Use
  Company Number: PHHY2012FR108388

PATIENT

DRUGS (2)
  1. TRAMADOL SANDOZ [Suspect]
     Indication: PAIN IN EXTREMITY
     Dosage: 350 mg, (7 times a day)
     Route: 048
     Dates: start: 20120823, end: 20120901
  2. DUROGESIC [Suspect]
     Indication: PAIN IN EXTREMITY

REACTIONS (10)
  - Death [Fatal]
  - Aggression [Recovered/Resolved]
  - Hyponatraemia [Unknown]
  - Dehydration [Unknown]
  - Renal failure [Unknown]
  - Haematuria [Unknown]
  - Hyperkalaemia [Unknown]
  - Thrombocytopenia [Unknown]
  - Hallucination [Recovered/Resolved]
  - Vomiting [Recovered/Resolved]
